FAERS Safety Report 21876794 (Version 2)
Quarter: 2023Q1

REPORT INFORMATION
  Report Type: Other
  Country: DE (occurrence: DE)
  Receive Date: 20230118
  Receipt Date: 20230130
  Transmission Date: 20230418
  Serious: Yes (Death, Other)
  Sender: FDA-Public Use
  Company Number: DE-CELLTRION INC.-2023DE000526

PATIENT

DRUGS (8)
  1. INFLIXIMAB [Suspect]
     Active Substance: INFLIXIMAB
     Indication: Colitis ulcerative
     Dosage: 0. - 39.3. GESTATIONAL WEEK
     Route: 058
  2. METOPROLOL [Suspect]
     Active Substance: METOPROLOL
     Indication: Tachycardia
     Dosage: 23.75 [MG/D ]; 0. - 39.3. GESTATIONAL WEEK
     Route: 048
     Dates: start: 20211111, end: 20220814
  3. ASPIRIN [Concomitant]
     Active Substance: ASPIRIN
     Indication: Prophylaxis
     Dosage: 150 [MG/D (BIS 100) ]; 10. - 36. GESTATIONAL WEEK
     Route: 048
  4. COMIRNATY [Concomitant]
     Active Substance: TOZINAMERAN
     Indication: COVID-19 immunisation
     Dosage: 14.1. - 14.1. GESTATIONAL WEEK
     Route: 030
     Dates: start: 20220218, end: 20220218
  5. LEVOTHYROXINE SODIUM [Concomitant]
     Active Substance: LEVOTHYROXINE SODIUM
     Indication: Hypothyroidism
     Dosage: 100 MICROGRAM, QD; 0. - 39.3. GESTATIONAL WEEK
     Route: 048
     Dates: start: 20211111, end: 20220814
  6. ACETAMINOPHEN [Concomitant]
     Active Substance: ACETAMINOPHEN
     Indication: Migraine
     Dosage: 38.2. - 38.2. GESTATIONAL WEEK
     Route: 048
     Dates: start: 20220806, end: 20220806
  7. FOLIC ACID [Concomitant]
     Active Substance: FOLIC ACID
     Indication: Prophylaxis of neural tube defect
     Dosage: TRIMESTER: UNKNOWN TRIMESTER
     Route: 048
  8. FOLIC ACID [Concomitant]
     Active Substance: FOLIC ACID
     Indication: Prophylaxis of neural tube defect
     Dosage: TRIMESER: UNKNOWN TRIMESTER

REACTIONS (2)
  - Foetal death [Fatal]
  - Exposure during pregnancy [Fatal]
